FAERS Safety Report 4722324-0 (Version None)
Quarter: 2005Q3

REPORT INFORMATION
  Report Type: 
  Country: None (occurrence: None)
  Receive Date: 20050722
  Receipt Date: 20050216
  Transmission Date: 20060218
  Serious: No
  Sender: FDA-Public Use
  Company Number: US-GLAXOSMITHKLINE-A0546343A

PATIENT
  Age: 52 Year
  Sex: Female

DRUGS (9)
  1. AVANDIA [Suspect]
     Dosage: 8MG PER DAY
     Route: 048
     Dates: start: 20041101
  2. METFORMIN [Concomitant]
  3. GLYBURIDE [Concomitant]
  4. DIOVAN HCT [Concomitant]
  5. LIPITOR [Concomitant]
  6. MULTI-VITAMIN [Concomitant]
  7. CALCIUM GLUCONATE [Concomitant]
  8. ASPIRIN [Concomitant]
  9. VITAMIN E [Concomitant]

REACTIONS (1)
  - ALOPECIA [None]
